FAERS Safety Report 5864240-7 (Version None)
Quarter: 2008Q3

REPORT INFORMATION
  Report Type: 
  Country: None (occurrence: None)
  Receive Date: 20080829
  Receipt Date: 20080529
  Transmission Date: 20090109
  Serious: No
  Sender: FDA-Public Use
  Company Number: US-ABBOTT-08P-163-0454060-00

PATIENT
  Sex: Male
  Weight: 104.42 kg

DRUGS (4)
  1. SIMCOR [Suspect]
     Indication: BLOOD CHOLESTEROL
     Dates: start: 20080528, end: 20080529
  2. NORVASC [Concomitant]
     Indication: BLOOD PRESSURE INCREASED
     Route: 048
  3. ALTACE [Concomitant]
     Indication: BLOOD PRESSURE INCREASED
     Route: 048
  4. GENERIC PRILOSEC [Concomitant]
     Indication: GASTROOESOPHAGEAL REFLUX DISEASE
     Route: 048

REACTIONS (3)
  - BURNING SENSATION [None]
  - PALPITATIONS [None]
  - PRURITUS GENERALISED [None]
